FAERS Safety Report 18975691 (Version 3)
Quarter: 2021Q2

REPORT INFORMATION
  Report Type: Spontaneous
  Country: JP (occurrence: JP)
  Receive Date: 20210305
  Receipt Date: 20210607
  Transmission Date: 20210717
  Serious: Yes (Death, Other)
  Sender: FDA-Public Use
  Company Number: JP-009507513-2103JPN000117J

PATIENT
  Age: 48 Year
  Sex: Male
  Weight: 80 kg

DRUGS (9)
  1. AXITINIB [Suspect]
     Active Substance: AXITINIB
     Dosage: 10 MILLIGRAM, 7 X PER WEEK
     Route: 048
     Dates: start: 20200520, end: 20210217
  2. KEYTRUDA [Suspect]
     Active Substance: PEMBROLIZUMAB
     Indication: RENAL CELL CARCINOMA STAGE IV
     Dosage: 200 MILLIGRAM, Q3W
     Route: 041
     Dates: start: 20200318, end: 20210217
  3. NIFEDIPINE. [Concomitant]
     Active Substance: NIFEDIPINE
     Indication: HYPERTENSION
     Dosage: 20 MILLIGRAM, BID
     Route: 048
     Dates: start: 20200323
  4. AXITINIB [Suspect]
     Active Substance: AXITINIB
     Dosage: 8 MILLIGRAM, 7 X PER WEEK
     Route: 048
     Dates: start: 20200408, end: 20200519
  5. BAYASPIRIN [Concomitant]
     Active Substance: ASPIRIN
     Indication: THROMBOSIS PROPHYLAXIS
     Dosage: 100 MILLIGRAM, QD
     Route: 048
     Dates: start: 20200318
  6. AZILVA [Concomitant]
     Active Substance: AZILSARTAN KAMEDOXOMIL
     Indication: HYPERTENSION
     Dosage: 40 MILLIGRAM, QD
     Route: 048
     Dates: start: 20200310
  7. AXITINIB [Suspect]
     Active Substance: AXITINIB
     Indication: RENAL CELL CARCINOMA STAGE IV
     Dosage: 5 MILLIGRAM, 7 X PER WEEK
     Route: 048
     Dates: start: 20200318, end: 20200407
  8. ROSUVASTATIN [ROSUVASTATIN CALCIUM] [Concomitant]
     Active Substance: ROSUVASTATIN CALCIUM
     Indication: HYPERLIPIDAEMIA
     Dosage: 2.5 MILLIGRAM, QD
     Route: 048
     Dates: start: 20200318
  9. BISOPROLOL FUMARATE. [Concomitant]
     Active Substance: BISOPROLOL FUMARATE
     Indication: HYPERTENSION
     Dosage: 0.625 MILLIGRAM, QD
     Route: 048
     Dates: start: 20200318

REACTIONS (7)
  - Aspartate aminotransferase increased [Not Recovered/Not Resolved]
  - Protein urine present [Unknown]
  - Alanine aminotransferase increased [Not Recovered/Not Resolved]
  - Pain in extremity [Recovered/Resolved]
  - Gamma-glutamyltransferase increased [Not Recovered/Not Resolved]
  - Diarrhoea [Recovering/Resolving]
  - Circulatory collapse [Fatal]

NARRATIVE: CASE EVENT DATE: 20200408
